FAERS Safety Report 9223471 (Version 1)
Quarter: 2013Q2

REPORT INFORMATION
  Report Type: Spontaneous
  Country: US (occurrence: US)
  Receive Date: 20130410
  Receipt Date: 20130410
  Transmission Date: 20140414
  Serious: Yes (Other)
  Sender: FDA-Public Use
  Company Number: US-TEVA-396420USA

PATIENT
  Age: 48 Year
  Sex: Female
  Weight: 67.19 kg

DRUGS (3)
  1. NUVIGIL [Suspect]
     Indication: PREMENSTRUAL SYNDROME
     Dates: start: 20130401, end: 20130402
  2. NUVIGIL [Suspect]
     Indication: DEPRESSION
  3. CLONAZEPAM [Suspect]
     Indication: TEMPOROMANDIBULAR JOINT SYNDROME
     Dosage: BID

REACTIONS (3)
  - Lip swelling [Not Recovered/Not Resolved]
  - Burning sensation [Not Recovered/Not Resolved]
  - Off label use [Unknown]
